FAERS Safety Report 5922021-X (Version None)
Quarter: 2008Q4

REPORT INFORMATION
  Report Type: 
  Country: None (occurrence: None)
  Receive Date: 20081017
  Receipt Date: 20081015
  Transmission Date: 20090506
  Serious: Yes (Other)
  Sender: FDA-Public Use
  Company Number: A0752009A

PATIENT
  Age: 10 Year
  Sex: Female

DRUGS (1)
  1. ALTABAX [Suspect]
     Indication: WOUND
     Route: 061
     Dates: start: 20081004, end: 20081001

REACTIONS (1)
  - WOUND COMPLICATION [None]
